FAERS Safety Report 14101990 (Version 5)
Quarter: 2017Q4

REPORT INFORMATION
  Report Type: Report from Study
  Country: US (occurrence: US)
  Receive Date: 20171018
  Receipt Date: 20171116
  Transmission Date: 20180321
  Serious: Yes (Hospitalization)
  Sender: FDA-Public Use
  Company Number: US-ROCHE-1978207

PATIENT
  Age: 61 Year
  Sex: Female
  Weight: 70.9 kg

DRUGS (17)
  1. OBINUTUZUMAB. [Suspect]
     Active Substance: OBINUTUZUMAB
     Indication: B-CELL LYMPHOMA
     Dosage: DATE OF MOST RECENT DOSE OF OBINUTUZUMAB PRIOR TO AE ONSET: 02/AUG/2017 (840 MG)?ON DAYS 1, 8, AND 1
     Route: 042
     Dates: start: 20160518
  2. CYCLOPHOSPHAMIDE. [Suspect]
     Active Substance: CYCLOPHOSPHAMIDE
     Indication: B-CELL LYMPHOMA
     Dosage: AT A DOSE OF 750 MG/M^2 IV ON DAY 1 OF CYCLE 1-6/8, DURING INDUCTION TREATMENT.?MOST RECENT DOSE ON
     Route: 042
     Dates: start: 20160518
  3. LIDOCAINE. [Concomitant]
     Active Substance: LIDOCAINE
     Indication: HERPES ZOSTER
     Route: 065
     Dates: start: 20160907
  4. ATEZOLIZUMAB. [Suspect]
     Active Substance: ATEZOLIZUMAB
     Indication: B-CELL LYMPHOMA
     Dosage: ON DAY 1 CYCLES 2-6, DURING INDUCTION TREATMENT, FOLLOWED BY 840 MG IV ON DAYS 1 AND 2 OF EACH MONTH
     Route: 042
     Dates: start: 20160608
  5. METHYLPREDNISOLONE. [Suspect]
     Active Substance: METHYLPREDNISOLONE
     Indication: B-CELL LYMPHOMA
     Route: 048
     Dates: start: 20160518
  6. MOTRIN [Concomitant]
     Active Substance: IBUPROFEN
     Indication: PAIN
  7. IBUPROFEN. [Concomitant]
     Active Substance: IBUPROFEN
     Indication: HERPES ZOSTER
     Route: 065
     Dates: start: 20160904
  8. PREDNISONE. [Suspect]
     Active Substance: PREDNISONE
     Indication: B-CELL LYMPHOMA
     Dosage: AT A DOSE OF 40 MG/M^2 ORALLY ON DAYS 1-5 OF CYCLE 1-6/8, DURING INDUCTION TREATMENT?MOST RECENT DOS
     Route: 048
     Dates: start: 20160519
  9. VINCRISTINE [Suspect]
     Active Substance: VINCRISTINE
     Indication: B-CELL LYMPHOMA
     Dosage: AT A DOSE OF 1.4 MG/M^2 (MAXIMUM 2 MG) IV ON DAY 1 OF CYCLE 1-6/8, DURING INDUCTION TREATMENT.?MOST
     Route: 042
     Dates: start: 20160518
  10. ASCORBIC ACID. [Concomitant]
     Active Substance: ASCORBIC ACID
  11. CALCIUM CITRATE [Concomitant]
     Active Substance: CALCIUM CITRATE
  12. CITALOPRAM HYDROBROMIDE. [Concomitant]
     Active Substance: CITALOPRAM HYDROBROMIDE
     Indication: DEPRESSION
  13. LUNESTA [Concomitant]
     Active Substance: ESZOPICLONE
     Indication: SLEEP DISORDER
  14. GABAPENTIN. [Concomitant]
     Active Substance: GABAPENTIN
     Indication: HERPES ZOSTER
     Route: 065
     Dates: start: 20160907
  15. VALACYCLOVIR [Concomitant]
     Active Substance: VALACYCLOVIR HYDROCHLORIDE
     Indication: HERPES ZOSTER
     Route: 065
     Dates: start: 20160904
  16. DOXORUBICIN [Suspect]
     Active Substance: DOXORUBICIN
     Indication: B-CELL LYMPHOMA
     Dosage: AT A DOSE OF 50 MG/M^2 IV ON DAY 1 OF CYCLE 1-6/8, DURING INDUCTION TREATMENT.?MOST RECENT DOSE ON 3
     Route: 042
     Dates: start: 20160518
  17. TRAZODONE [Concomitant]
     Active Substance: TRAZODONE HYDROCHLORIDE
     Indication: DEPRESSION

REACTIONS (1)
  - Febrile neutropenia [Recovered/Resolved]

NARRATIVE: CASE EVENT DATE: 20170809
